FAERS Safety Report 15808284 (Version 2)
Quarter: 2019Q1

REPORT INFORMATION
  Report Type: Spontaneous
  Country: RO (occurrence: RO)
  Receive Date: 20190110
  Receipt Date: 20190126
  Transmission Date: 20190417
  Serious: Yes (Life-Threatening, Hospitalization, Other)
  Sender: FDA-Public Use
  Company Number: PHHY2019RO003121

PATIENT
  Age: 55 Year

DRUGS (4)
  1. TICAGRELOR. [Concomitant]
     Active Substance: TICAGRELOR
     Indication: ANTIPLATELET THERAPY
     Dosage: 180 MG, UNK
     Route: 048
  2. ACETYLSALICYLIC ACID [Suspect]
     Active Substance: ASPIRIN
     Indication: PRODUCT USED FOR UNKNOWN INDICATION
     Dosage: 250 MG, UNK
     Route: 048
  3. TENECTEPLASE [Concomitant]
     Active Substance: TENECTEPLASE
     Indication: THROMBOLYSIS
     Dosage: UNK
     Route: 065
  4. ENOXAPARIN [Concomitant]
     Active Substance: ENOXAPARIN
     Indication: THROMBOLYSIS
     Dosage: UNK
     Route: 065

REACTIONS (5)
  - Acute myocardial infarction [Recovering/Resolving]
  - Myocardial ischaemia [Recovering/Resolving]
  - Type III immune complex mediated reaction [Recovered/Resolved]
  - Coronary artery stenosis [Recovering/Resolving]
  - Anaphylactic shock [Recovered/Resolved]
